FAERS Safety Report 10901971 (Version 1)
Quarter: 2015Q1

REPORT INFORMATION
  Report Type: Spontaneous
  Country: US (occurrence: US)
  Receive Date: 20150310
  Receipt Date: 20150310
  Transmission Date: 20150721
  Serious: No
  Sender: FDA-Public Use
  Company Number: US-GLAXOSMITHKLINE-US2015023116

PATIENT
  Sex: Female

DRUGS (6)
  1. ALBUTEROL NEBULISER SOLUTION [Concomitant]
     Active Substance: ALBUTEROL SULFATE
  2. PRIMIDONE. [Concomitant]
     Active Substance: PRIMIDONE
  3. LORTAB (LORATADINE) [Concomitant]
  4. BREO ELLIPTA [Suspect]
     Active Substance: FLUTICASONE FUROATE\VILANTEROL TRIFENATATE
     Indication: CHRONIC OBSTRUCTIVE PULMONARY DISEASE
     Dosage: 1 PUFF(S), 1D
     Route: 055
  5. MUCINEX [Concomitant]
     Active Substance: GUAIFENESIN
  6. VENTOLIN HFA [Concomitant]
     Active Substance: ALBUTEROL SULFATE

REACTIONS (11)
  - Dental care [Recovered/Resolved]
  - Oral discomfort [Recovered/Resolved]
  - Pharyngeal inflammation [Recovered/Resolved]
  - Tooth extraction [Recovered/Resolved]
  - Denture wearer [Not Recovered/Not Resolved]
  - Candida infection [Recovered/Resolved]
  - Ageusia [Recovering/Resolving]
  - Oral discomfort [Not Recovered/Not Resolved]
  - Oropharyngeal discomfort [Recovered/Resolved]
  - Dry mouth [Recovered/Resolved]
  - Gingival disorder [Not Recovered/Not Resolved]
